FAERS Safety Report 20511431 (Version 2)
Quarter: 2022Q2

REPORT INFORMATION
  Report Type: Spontaneous
  Country: JP (occurrence: JP)
  Receive Date: 20220224
  Receipt Date: 20220415
  Transmission Date: 20220721
  Serious: Yes (Death, Hospitalization)
  Sender: FDA-Public Use
  Company Number: JP-Covis Pharma Europe B.V.-2022COV00566

PATIENT
  Age: 76 Year
  Sex: Male

DRUGS (7)
  1. CICLESONIDE [Suspect]
     Active Substance: CICLESONIDE
     Indication: COVID-19
  2. DEXAMETHASONE [Suspect]
     Active Substance: DEXAMETHASONE
     Indication: COVID-19
     Route: 065
  3. DEXAMETHASONE [Suspect]
     Active Substance: DEXAMETHASONE
     Route: 065
  4. MEROPENEM [Suspect]
     Active Substance: MEROPENEM
     Indication: Pneumonia bacterial
     Route: 065
  5. VANCOMYCIN HYDROCHLORIDE [Suspect]
     Active Substance: VANCOMYCIN HYDROCHLORIDE
     Indication: Staphylococcal infection
     Route: 065
  6. FAVIPIRAVIR [Concomitant]
     Active Substance: FAVIPIRAVIR
     Indication: COVID-19
     Route: 048
  7. HEPARIN [Concomitant]
     Active Substance: HEPARIN SODIUM
     Indication: COVID-19
     Route: 058

REACTIONS (2)
  - Bronchopulmonary aspergillosis [Fatal]
  - Off label use [Unknown]
